FAERS Safety Report 19958093 (Version 1)
Quarter: 2021Q4

REPORT INFORMATION
  Report Type: Spontaneous
  Country: US (occurrence: US)
  Receive Date: 20211015
  Receipt Date: 20211015
  Transmission Date: 20220303
  Serious: No
  Sender: FDA-Public Use
  Company Number: US-MYLANLABS-2021M1072166

PATIENT

DRUGS (1)
  1. VALSARTAN [Suspect]
     Active Substance: VALSARTAN
     Indication: Blood pressure measurement
     Dosage: UNK UNK, QD, ONCE A DAY
     Route: 048

REACTIONS (2)
  - Nausea [Unknown]
  - Product odour abnormal [Unknown]
